FAERS Safety Report 19653427 (Version 3)
Quarter: 2024Q2

REPORT INFORMATION
  Report Type: Spontaneous
  Country: CZ (occurrence: CZ)
  Receive Date: 20210803
  Receipt Date: 20240415
  Transmission Date: 20240716
  Serious: Yes (Hospitalization, Other)
  Sender: FDA-Public Use
  Company Number: CZ-MYLANLABS-2021M1005266

PATIENT
  Age: 69 Year
  Sex: Female

DRUGS (7)
  1. LETROZOLE [Suspect]
     Active Substance: LETROZOLE
     Indication: Invasive ductal breast carcinoma
     Dosage: UNK
     Route: 065
  2. LETROZOLE [Suspect]
     Active Substance: LETROZOLE
     Indication: Breast cancer
  3. DOXORUBICIN [Suspect]
     Active Substance: DOXORUBICIN
     Indication: Invasive ductal breast carcinoma
     Dosage: 80MG/SQ.M(4 TIMES DOXORUBICIN 60 MG/M2+CYCLOPHOSPHAMIDE 600 MG/M2)
     Route: 065
  4. CYCLOPHOSPHAMIDE [Suspect]
     Active Substance: CYCLOPHOSPHAMIDE
     Indication: Invasive ductal breast carcinoma
     Dosage: 600 MILLIGRAM/SQ. M(NEOADJUVANT CHEMOTHERAPY 4X AC REGIMEN (CYCLOPHOSPHAMIDE 600 MG/M2) 4 TIMES)
     Route: 065
  5. DOCETAXEL [Suspect]
     Active Substance: DOCETAXEL\DOCETAXEL ANHYDROUS
     Indication: Invasive ductal breast carcinoma
     Dosage: 100 MILLIGRAM/SQ. METER, BID
     Route: 065
  6. ANASTROZOLE [Concomitant]
     Active Substance: ANASTROZOLE
     Dosage: UNK
     Route: 065
  7. METFORMIN [Concomitant]
     Active Substance: METFORMIN HYDROCHLORIDE
     Indication: Type 2 diabetes mellitus
     Dosage: UNK
     Route: 048

REACTIONS (5)
  - Myalgia [Unknown]
  - Hypersensitivity [Unknown]
  - Rash [Unknown]
  - Breast cancer recurrent [Unknown]
  - Anaemia megaloblastic [Unknown]

NARRATIVE: CASE EVENT DATE: 20130801
